FAERS Safety Report 9893629 (Version 1)
Quarter: 2014Q1

REPORT INFORMATION
  Report Type: Spontaneous
  Country: BR (occurrence: BR)
  Receive Date: 20140213
  Receipt Date: 20140213
  Transmission Date: 20141002
  Serious: Yes (Other)
  Sender: FDA-Public Use
  Company Number: PHHY2014BR016435

PATIENT
  Sex: Female
  Weight: 3.6 kg

DRUGS (2)
  1. DESERILA [Suspect]
     Dosage: MATERNAL DOSE (1 DF DAILY)
  2. NARAMIG [Suspect]
     Dosage: UNKNOWN MATERNAL DOSE, WHENEVER NEEDED

REACTIONS (2)
  - Premature baby [Unknown]
  - Foetal exposure during pregnancy [Unknown]
